FAERS Safety Report 5278033-5 (Version None)
Quarter: 2007Q1

REPORT INFORMATION
  Report Type: 
  Country: None (occurrence: None)
  Receive Date: 20070321
  Receipt Date: 20070306
  Transmission Date: 20070707
  Serious: Yes (Hospitalization)
  Sender: FDA-Public Use
  Company Number: 2007AL000938

PATIENT
  Age: 54 Year
  Sex: Male

DRUGS (3)
  1. DIAZEPAM [Suspect]
     Indication: AGITATION
     Dosage: 5 MG; X1; PO
     Route: 048
     Dates: start: 20060616, end: 20060616
  2. LIDOCAINE [Concomitant]
  3. CARBAMAZEPINE [Concomitant]

REACTIONS (5)
  - BLOOD PRESSURE SYSTOLIC DECREASED [None]
  - DIZZINESS [None]
  - HEART RATE DECREASED [None]
  - MALAISE [None]
  - RASH [None]
